FAERS Safety Report 9225739 (Version 1)
Quarter: 2013Q1

REPORT INFORMATION
  Report Type: Spontaneous
  Country: US (occurrence: None)
  Receive Date: 20120912
  Receipt Date: 20120912
  Transmission Date: 20140127
  Serious: No
  Sender: FDA-Public Use
  Company Number: 2012SP036720

PATIENT
  Age: 51 Year
  Sex: Male

DRUGS (3)
  1. VICTRELIS 200 MG [Suspect]
     Indication: HEPATITIS C
     Route: 048
     Dates: start: 20120402, end: 20120626
  2. RIBAPAK [Suspect]
     Dates: start: 20120308, end: 20120626
  3. PEGASYS [Suspect]
     Indication: HEPATITIS C
     Dosage: 180 MCG;QW
     Dates: start: 20120308, end: 20120626

REACTIONS (1)
  - Therapeutic product ineffective [None]
